FAERS Safety Report 15969514 (Version 4)
Quarter: 2019Q2

REPORT INFORMATION
  Report Type: Report from Study
  Country: US (occurrence: US)
  Receive Date: 20190215
  Receipt Date: 20190418
  Transmission Date: 20190711
  Serious: Yes (Life-Threatening, Hospitalization, Other)
  Sender: FDA-Public Use
  Company Number: US-ACTELION-A-US2019-186313

PATIENT
  Age: 60 Year
  Sex: Female

DRUGS (7)
  1. LUVOX [Concomitant]
     Active Substance: FLUVOXAMINE MALEATE
     Dosage: UNK
     Dates: start: 20190218
  2. PRADAXA [Suspect]
     Active Substance: DABIGATRAN ETEXILATE MESYLATE
     Indication: PRODUCT USED FOR UNKNOWN INDICATION
     Dosage: UNK
     Route: 065
     Dates: start: 20190218
  3. OPSUMIT [Suspect]
     Active Substance: MACITENTAN
     Indication: PULMONARY ARTERIAL HYPERTENSION
     Dosage: 10 MG, QD
     Route: 048
     Dates: start: 20170610
  4. PANTOPRAZOLE [Concomitant]
     Active Substance: PANTOPRAZOLE
     Dosage: UNK
     Dates: start: 20190218
  5. POLYETHYLENE GLYCOL [Concomitant]
     Active Substance: POLYETHYLENE GLYCOLS
     Dosage: UNK
     Dates: start: 20190218
  6. ORENITRAM [Suspect]
     Active Substance: TREPROSTINIL
     Indication: PRODUCT USED FOR UNKNOWN INDICATION
     Dosage: UNK
     Route: 065
     Dates: start: 201901
  7. PROPOFOL. [Concomitant]
     Active Substance: PROPOFOL
     Dosage: UNK
     Dates: start: 20190218

REACTIONS (22)
  - Hiatus hernia [Recovered/Resolved with Sequelae]
  - Oropharyngeal pain [Recovered/Resolved]
  - Activated partial thromboplastin time prolonged [Unknown]
  - Atrial fibrillation [Recovered/Resolved with Sequelae]
  - Dyspnoea [Recovered/Resolved]
  - Upper gastrointestinal haemorrhage [Recovered/Resolved with Sequelae]
  - Nausea [Recovered/Resolved with Sequelae]
  - Blood phosphorus increased [Recovered/Resolved with Sequelae]
  - Acquired oesophageal web [Recovered/Resolved with Sequelae]
  - Gastrointestinal haemorrhage [Unknown]
  - Oxygen saturation decreased [Recovered/Resolved]
  - Erosive oesophagitis [Recovered/Resolved]
  - Abdominal discomfort [Recovered/Resolved with Sequelae]
  - Haematemesis [Recovered/Resolved with Sequelae]
  - Cardioversion [Unknown]
  - Diarrhoea [Recovered/Resolved with Sequelae]
  - Dyspepsia [Recovered/Resolved with Sequelae]
  - Loss of consciousness [Recovered/Resolved with Sequelae]
  - Dehydration [Recovered/Resolved with Sequelae]
  - Acute kidney injury [Recovered/Resolved with Sequelae]
  - Atrial flutter [Recovered/Resolved]
  - Product dose omission [Unknown]

NARRATIVE: CASE EVENT DATE: 20181215
